FAERS Safety Report 12054325 (Version 3)
Quarter: 2016Q3

REPORT INFORMATION
  Report Type: Spontaneous
  Country: BR (occurrence: BR)
  Receive Date: 20160209
  Receipt Date: 20160707
  Transmission Date: 20161109
  Serious: Yes (Other)
  Sender: FDA-Public Use
  Company Number: BR-JNJFOC-20160205704

PATIENT
  Age: 40 Year
  Sex: Female

DRUGS (2)
  1. REMICADE [Suspect]
     Active Substance: INFLIXIMAB
     Indication: RHEUMATOID ARTHRITIS
     Dosage: LAST INFUSION
     Route: 042
     Dates: start: 20150611
  2. REMICADE [Suspect]
     Active Substance: INFLIXIMAB
     Indication: RHEUMATOID ARTHRITIS
     Route: 042
     Dates: start: 20141110

REACTIONS (8)
  - Arthralgia [Unknown]
  - Dysstasia [Unknown]
  - Mouth injury [Unknown]
  - Toothache [Recovering/Resolving]
  - Pain in extremity [Unknown]
  - Dental caries [Unknown]
  - Chondropathy [Unknown]
  - Mouth swelling [Recovering/Resolving]

NARRATIVE: CASE EVENT DATE: 201506
